FAERS Safety Report 13734532 (Version 1)
Quarter: 2017Q3

REPORT INFORMATION
  Report Type: Spontaneous
  Country: AT (occurrence: AT)
  Receive Date: 20170709
  Receipt Date: 20170709
  Transmission Date: 20171127
  Serious: Yes (Other)
  Sender: FDA-Public Use
  Company Number: AT-TEVA-783898ISR

PATIENT
  Sex: Female

DRUGS (1)
  1. CIPROFLOXACIN. [Suspect]
     Active Substance: CIPROFLOXACIN

REACTIONS (23)
  - Colitis [Unknown]
  - Muscle spasms [Unknown]
  - Migraine [Unknown]
  - Gait disturbance [Unknown]
  - Drug reaction with eosinophilia and systemic symptoms [Unknown]
  - Angioedema [Unknown]
  - Disorientation [Unknown]
  - Dyspnoea [Unknown]
  - Hallucination [Unknown]
  - Mania [Unknown]
  - Suicidal ideation [Unknown]
  - Confusional state [Unknown]
  - Depression [Unknown]
  - Myalgia [Unknown]
  - Anxiety [Unknown]
  - Visual impairment [Unknown]
  - Blood count abnormal [Unknown]
  - Blood prolactin increased [Unknown]
  - Nightmare [Unknown]
  - Arthralgia [Unknown]
  - Arthritis [Unknown]
  - Mental disorder [Unknown]
  - Tachycardia [Unknown]
